FAERS Safety Report 15339634 (Version 1)
Quarter: 2018Q3

REPORT INFORMATION
  Report Type: Spontaneous
  Country: TW (occurrence: TW)
  Receive Date: 20180831
  Receipt Date: 20180831
  Transmission Date: 20181010
  Serious: Yes (Hospitalization, Other)
  Sender: FDA-Public Use
  Company Number: TW-PFIZER INC-2018344479

PATIENT
  Age: 71 Year
  Sex: Female

DRUGS (4)
  1. GENIQUIN [Concomitant]
     Dosage: 200 MG, DAILY
  2. XELJANZ [Suspect]
     Active Substance: TOFACITINIB CITRATE
     Dosage: 5 MG, 150 TABLETS BEEN USED IN 3 MONTHS
     Dates: start: 20171022
  3. XELJANZ [Suspect]
     Active Substance: TOFACITINIB CITRATE
     Indication: RHEUMATOID ARTHRITIS
     Dosage: 5 MG, BID
     Route: 048
     Dates: start: 20161019, end: 20171021
  4. MTX [Concomitant]
     Active Substance: METHOTREXATE SODIUM
     Dosage: 7.5 MG, WEEKLY

REACTIONS (1)
  - Cerebrovascular accident [Not Recovered/Not Resolved]

NARRATIVE: CASE EVENT DATE: 20180822
